FAERS Safety Report 5502221-3 (Version None)
Quarter: 2007Q4

REPORT INFORMATION
  Report Type: 
  Country: None (occurrence: None)
  Receive Date: 20071030
  Receipt Date: 20071022
  Transmission Date: 20080405
  Serious: Yes (Life-Threatening, Hospitalization, Other)
  Sender: FDA-Public Use
  Company Number: JP-AVENTIS-200410364JP

PATIENT
  Age: 69 Year
  Sex: Female
  Weight: 42 kg

DRUGS (8)
  1. ARAVA [Suspect]
     Route: 048
     Dates: start: 20031030, end: 20031101
  2. ARAVA [Suspect]
     Route: 048
     Dates: start: 20031102, end: 20040131
  3. PREDNISOLONE [Concomitant]
     Indication: RHEUMATOID ARTHRITIS
     Route: 048
     Dates: start: 20030808, end: 20040212
  4. RABEPRAZOLE SODIUM [Concomitant]
     Indication: REFLUX OESOPHAGITIS
     Route: 048
     Dates: start: 20030808
  5. ULCERMIN [Concomitant]
     Indication: GASTRITIS PROPHYLAXIS
     Route: 048
  6. LOXONIN                            /00890701/ [Concomitant]
     Route: 048
  7. RISEDRONATE SODIUM [Concomitant]
     Indication: OSTEOPOROSIS
     Route: 048
  8. RHEUMATREX                         /00113801/ [Concomitant]
     Indication: RHEUMATOID ARTHRITIS
     Dosage: DOSE: 4MG/WEEK
     Route: 048
     Dates: start: 20030715, end: 20031018

REACTIONS (6)
  - ANAEMIA [None]
  - ANAEMIA MACROCYTIC [None]
  - PANCYTOPENIA [None]
  - PNEUMONIA BACTERIAL [None]
  - RESPIRATORY FAILURE [None]
  - THROMBOCYTOPENIA [None]
